FAERS Safety Report 6573490-6 (Version None)
Quarter: 2010Q1

REPORT INFORMATION
  Report Type: 
  Country: None (occurrence: None)
  Receive Date: 20100208
  Receipt Date: 20100129
  Transmission Date: 20100710
  Serious: Yes (Hospitalization, Other)
  Sender: FDA-Public Use
  Company Number: US-SANOFI-AVENTIS-2010SA006312

PATIENT
  Age: 71 Year
  Sex: Female

DRUGS (4)
  1. LANTUS [Suspect]
     Indication: TYPE 2 DIABETES MELLITUS
     Dosage: DOSE:32 UNIT(S)
     Route: 058
     Dates: start: 20080101
  2. SOLOSTAR [Suspect]
     Indication: TYPE 2 DIABETES MELLITUS
     Dates: start: 20080101
  3. HUMALOG [Suspect]
     Route: 065
  4. DIURETICS [Suspect]
     Route: 065

REACTIONS (4)
  - BLOOD GLUCOSE DECREASED [None]
  - HEART RATE INCREASED [None]
  - HOSPITALISATION [None]
  - HYPERHIDROSIS [None]
